FAERS Safety Report 12713446 (Version 1)
Quarter: 2016Q3

REPORT INFORMATION
  Report Type: Spontaneous
  Country: US (occurrence: US)
  Receive Date: 20160903
  Receipt Date: 20160903
  Transmission Date: 20161109
  Serious: No
  Sender: FDA-Public Use
  Company Number: US-ELI_LILLY_AND_COMPANY-US201609000332

PATIENT
  Sex: Female

DRUGS (3)
  1. VITAMIN D                          /07503901/ [Concomitant]
  2. CALTRATE                           /00944201/ [Concomitant]
  3. FORTEO [Suspect]
     Active Substance: TERIPARATIDE
     Indication: OSTEOPOROSIS
     Dosage: UNK, QD
     Route: 058
     Dates: start: 20160816

REACTIONS (3)
  - Injection site erythema [Unknown]
  - Hypotension [Unknown]
  - Dizziness [Recovered/Resolved]
